FAERS Safety Report 7748822-3 (Version None)
Quarter: 2011Q3

REPORT INFORMATION
  Report Type: 
  Country: None (occurrence: None)
  Receive Date: 20110914
  Receipt Date: 20101101
  Transmission Date: 20111222
  Serious: No
  Sender: FDA-Public Use
  Company Number: US-BAYER-201041101NA

PATIENT
  Sex: Female

DRUGS (2)
  1. MIRENA [Suspect]
     Indication: CONTRACEPTION
     Dosage: 20 ?G/D, CONT
     Route: 015
  2. ANTIBIOTIC PILLS [Concomitant]

REACTIONS (6)
  - HYPOMENORRHOEA [None]
  - ABDOMINAL DISTENSION [None]
  - DECREASED APPETITE [None]
  - ABDOMINAL PAIN [None]
  - GENITAL HAEMORRHAGE [None]
  - ARTHRALGIA [None]
